FAERS Safety Report 7555261-7 (Version None)
Quarter: 2011Q2

REPORT INFORMATION
  Report Type: 
  Country: None (occurrence: None)
  Receive Date: 20110617
  Receipt Date: 20110404
  Transmission Date: 20111010
  Serious: No
  Sender: FDA-Public Use
  Company Number: US-MYLANLABS-2011S1002113

PATIENT
  Age: 73 Year
  Sex: Male
  Weight: 104.33 kg

DRUGS (12)
  1. TACROLIMUS [Suspect]
     Indication: PROPHYLAXIS AGAINST TRANSPLANT REJECTION
     Route: 048
     Dates: start: 20100101
  2. CAPTOPRIL [Concomitant]
     Indication: BLOOD PRESSURE
     Dates: start: 19980101
  3. PRAVASTATIN [Concomitant]
     Indication: BLOOD CHOLESTEROL INCREASED
     Dates: start: 19980101
  4. NEURONTIN [Concomitant]
     Indication: NEUROPATHY PERIPHERAL
     Dates: start: 20101101
  5. HUMALOG [Concomitant]
     Indication: DIABETES MELLITUS
     Dosage: SLIDING SCALE
     Dates: start: 19980101
  6. PRILOSEC [Concomitant]
     Indication: GASTROOESOPHAGEAL REFLUX DISEASE
     Dosage: AS NEEDED
  7. REGULAR INSULIN [Concomitant]
     Indication: DIABETES MELLITUS
     Dosage: SLIDING SCALE
     Dates: start: 19980101
  8. TYLENOL-500 [Concomitant]
  9. AZATHIOPRINE [Concomitant]
     Indication: PROPHYLAXIS AGAINST TRANSPLANT REJECTION
     Dates: start: 19980101
  10. ASPIRIN [Concomitant]
     Indication: PROPHYLAXIS
     Dates: start: 19980101
  11. IBUPROFEN (ADVIL) [Concomitant]
  12. FLOMAX [Concomitant]
     Indication: BENIGN PROSTATIC HYPERPLASIA

REACTIONS (2)
  - FLANK PAIN [None]
  - BACK PAIN [None]
